FAERS Safety Report 10015004 (Version 1)
Quarter: 2014Q1

REPORT INFORMATION
  Report Type: Spontaneous
  Country: JP (occurrence: JP)
  Receive Date: 20140317
  Receipt Date: 20140317
  Transmission Date: 20141002
  Serious: Yes (Hospitalization)
  Sender: FDA-Public Use
  Company Number: JP-ASTRAZENECA-2014SE18276

PATIENT
  Age: 77 Year
  Sex: Male

DRUGS (1)
  1. SEROQUEL [Suspect]
     Indication: INSOMNIA
     Route: 048

REACTIONS (3)
  - Thrombosis [Unknown]
  - Glycosylated haemoglobin increased [Unknown]
  - Off label use [Unknown]
